FAERS Safety Report 9276824 (Version 1)
Quarter: 2013Q2

REPORT INFORMATION
  Report Type: Spontaneous
  Country: US (occurrence: US)
  Receive Date: 20130507
  Receipt Date: 20130507
  Transmission Date: 20140414
  Serious: No
  Sender: FDA-Public Use
  Company Number: US-ALEXION-A201300305

PATIENT
  Age: 21 Year
  Sex: Female

DRUGS (5)
  1. SOLIRIS 300MG [Suspect]
     Indication: HAEMOLYTIC URAEMIC SYNDROME
     Dosage: UNK
     Route: 042
     Dates: start: 20121002
  2. SOLIRIS 300MG [Suspect]
     Dosage: 1200 MG, Q2W
     Route: 042
  3. LISINOPRIL [Concomitant]
     Dosage: UNK
     Dates: start: 20130211, end: 20130217
  4. HYDRALAZINE [Concomitant]
     Dosage: UNK
     Dates: end: 201302
  5. CLONIDINE [Concomitant]
     Dosage: UNK
     Dates: end: 2013

REACTIONS (7)
  - Hiccups [Unknown]
  - Hunger [Unknown]
  - Vaginal discharge [Unknown]
  - Vulvovaginal discomfort [Unknown]
  - Nausea [Unknown]
  - Hypotension [Unknown]
  - Pyrexia [Unknown]
